FAERS Safety Report 19242889 (Version 1)
Quarter: 2021Q2

REPORT INFORMATION
  Report Type: Spontaneous
  Country: US (occurrence: US)
  Receive Date: 20210511
  Receipt Date: 20210511
  Transmission Date: 20210717
  Serious: Yes (Death)
  Sender: FDA-Public Use
  Company Number: None

PATIENT
  Age: 63 Year
  Sex: Female

DRUGS (6)
  1. INSULIN ASPART [Concomitant]
     Active Substance: INSULIN ASPART
  2. VORICONAZOLE. [Concomitant]
     Active Substance: VORICONAZOLE
  3. PROMACTA [Suspect]
     Active Substance: ELTROMBOPAG OLAMINE
     Route: 048
     Dates: start: 20210128, end: 20210331
  4. LANSOPRAZOLE. [Concomitant]
     Active Substance: LANSOPRAZOLE
  5. CYCLOSPORINE. [Suspect]
     Active Substance: CYCLOSPORINE
     Route: 048
     Dates: start: 20210128, end: 20210331
  6. ACYCLOVIR. [Concomitant]
     Active Substance: ACYCLOVIR

REACTIONS (1)
  - Death [None]

NARRATIVE: CASE EVENT DATE: 20210511
